FAERS Safety Report 4650166-3 (Version None)
Quarter: 2005Q2

REPORT INFORMATION
  Report Type: 
  Country: None (occurrence: None)
  Receive Date: 20050502
  Receipt Date: 20050426
  Transmission Date: 20051028
  Serious: Yes (Hospitalization)
  Sender: FDA-Public Use
  Company Number: PHBS2005FI06060

PATIENT
  Age: 38 Year
  Sex: Female

DRUGS (6)
  1. ZOMETA [Suspect]
     Route: 042
     Dates: start: 20020925
  2. THALIDOMIDE [Concomitant]
     Dosage: 100 MG/D
     Route: 048
     Dates: start: 20030527
  3. DEXAMETHASONE [Concomitant]
     Dosage: 80 MG, QMO
     Route: 048
     Dates: start: 20020814, end: 20040906
  4. ONCOVIN [Concomitant]
     Dates: start: 20020814, end: 20021223
  5. ADRIAMYCIN [Concomitant]
     Dates: start: 20020814, end: 20021223
  6. KALCIPOS-D [Concomitant]
     Dosage: UNK, UNK
     Route: 048
     Dates: start: 20020925

REACTIONS (2)
  - ARTHRALGIA [None]
  - ASEPTIC NECROSIS BONE [None]
